FAERS Safety Report 5497858-4 (Version None)
Quarter: 2007Q4

REPORT INFORMATION
  Report Type: 
  Country: None (occurrence: None)
  Receive Date: 20071023
  Receipt Date: 20071008
  Transmission Date: 20080405
  Serious: Yes (Hospitalization)
  Sender: FDA-Public Use
  Company Number: 100#03#2007-04026

PATIENT
  Age: 58 Year
  Sex: Male

DRUGS (6)
  1. CLARITHROMYCIN [Suspect]
     Indication: BACTERIAL INFECTION
     Dosage: 500MG TWICE DAILY ORAL
     Route: 048
  2. CLARITHROMYCIN [Suspect]
     Indication: LOWER RESPIRATORY TRACT INFECTION
     Dosage: 500MG TWICE DAILY ORAL
     Route: 048
  3. DIDANOSINE (DIDANOSINE) (DIDANOSINE) [Suspect]
     Indication: HIV INFECTION
     Dosage: 200MG TWICE DAILY ORAL
     Route: 048
  4. NEVIRAPINE (NEVIRAPINE) (NEVIRAPINE) [Suspect]
     Indication: HIV INFECTION
     Dosage: 200MG TWICE DAILY ORAL
     Route: 048
  5. ZIDOVUDINE [Suspect]
     Indication: HIV INFECTION
     Dosage: 250MG TWICE DAILY ORAL
     Route: 048
  6. SIMVASTATIN [Concomitant]

REACTIONS (4)
  - DRUG INTERACTION [None]
  - HOMICIDAL IDEATION [None]
  - PSYCHOMOTOR HYPERACTIVITY [None]
  - SUICIDAL IDEATION [None]
